FAERS Safety Report 6284122-9 (Version None)
Quarter: 2009Q3

REPORT INFORMATION
  Report Type: 
  Country: None (occurrence: None)
  Receive Date: 20090723
  Receipt Date: 20090715
  Transmission Date: 20100115
  Serious: Yes (Other)
  Sender: FDA-Public Use
  Company Number: 2008AL007563

PATIENT
  Age: 47 Year
  Weight: 90.7194 kg

DRUGS (12)
  1. DIGOXIN [Suspect]
     Dosage: 0.125MG, DAILY, PO
     Route: 048
  2. CLONAZEPAM [Concomitant]
  3. ASPIRIN [Concomitant]
  4. PREVACID [Concomitant]
  5. PERCOCET [Concomitant]
  6. ALBUTEROL [Concomitant]
  7. COREG [Concomitant]
  8. EFFEXOR [Concomitant]
  9. REQUIP [Concomitant]
  10. VALIUM [Concomitant]
  11. AVALIDE [Concomitant]
  12. WELLBUTIRON [Concomitant]

REACTIONS (2)
  - NAUSEA [None]
  - NERVOUSNESS [None]
